FAERS Safety Report 7648606-0 (Version None)
Quarter: 2011Q3

REPORT INFORMATION
  Report Type: 
  Country: None (occurrence: None)
  Receive Date: 20110801
  Receipt Date: 20110719
  Transmission Date: 20111222
  Serious: Yes (Other)
  Sender: FDA-Public Use
  Company Number: PHHY2011DE65530

PATIENT
  Age: 41 Year
  Sex: Male

DRUGS (1)
  1. PAMIDRONATE DISODIUM [Suspect]
     Indication: OSTEOMYELITIS CHRONIC

REACTIONS (7)
  - URTICARIA [None]
  - LYMPHADENOPATHY [None]
  - BONE PAIN [None]
  - PYREXIA [None]
  - STILL'S DISEASE ADULT ONSET [None]
  - OROPHARYNGEAL PAIN [None]
  - DYSPHONIA [None]
